FAERS Safety Report 12247279 (Version 2)
Quarter: 2016Q2

REPORT INFORMATION
  Report Type: Spontaneous
  Country: US (occurrence: US)
  Receive Date: 20160407
  Receipt Date: 20160523
  Transmission Date: 20160815
  Serious: No
  Sender: FDA-Public Use
  Company Number: US-PFIZER INC-2016155411

PATIENT
  Sex: Female

DRUGS (3)
  1. LYRICA [Suspect]
     Active Substance: PREGABALIN
     Indication: DIABETIC NEUROPATHY
     Dosage: 25 MG, 3X/DAY
     Dates: start: 20160302, end: 20160307
  2. LYRICA [Suspect]
     Active Substance: PREGABALIN
     Dosage: 25MG, 3 CAPSULES (75 MG), 3X/DAY
     Dates: start: 20160310
  3. LYRICA [Suspect]
     Active Substance: PREGABALIN
     Dosage: 25MG, 2 CAPSULES (50 MG), 3X/DAY
     Dates: start: 20160307, end: 20160310

REACTIONS (4)
  - Drug ineffective [Unknown]
  - Pain [Unknown]
  - Paraesthesia [Unknown]
  - Gait disturbance [Unknown]

NARRATIVE: CASE EVENT DATE: 20160302
